FAERS Safety Report 6086457-1 (Version None)
Quarter: 2009Q1

REPORT INFORMATION
  Report Type: 
  Country: None (occurrence: None)
  Receive Date: 20090223
  Receipt Date: 20090210
  Transmission Date: 20090719
  Serious: Yes (Other)
  Sender: FDA-Public Use
  Company Number: PHHY2009BR05184

PATIENT
  Sex: Female
  Weight: 82 kg

DRUGS (4)
  1. DIOVAN [Suspect]
     Indication: HYPERTENSION
     Dosage: 80 MG, 1 TABLET A DAY
     Route: 048
     Dates: start: 20070101, end: 20090206
  2. OMEPRAZOLE [Concomitant]
     Dosage: 1 TABLET UNDER FASTING IN THE MORNING AND 1 TABLET BEFORE THE DINNER
     Route: 048
     Dates: start: 20090101
  3. EUTHYROX [Concomitant]
     Indication: POSTOPERATIVE CARE
     Dosage: 1 TABLET A DAY
     Route: 048
  4. NOVALGINA [Concomitant]
     Indication: BLOOD PRESSURE

REACTIONS (15)
  - AGITATION [None]
  - BACK PAIN [None]
  - BLOOD PRESSURE INCREASED [None]
  - CHEST PAIN [None]
  - COUGH [None]
  - DYSPNOEA [None]
  - EAR DISCOMFORT [None]
  - EMOTIONAL DISTRESS [None]
  - ERYTHEMA [None]
  - HEADACHE [None]
  - INCREASED UPPER AIRWAY SECRETION [None]
  - JOINT SWELLING [None]
  - MEMORY IMPAIRMENT [None]
  - ODYNOPHAGIA [None]
  - REFLUX OESOPHAGITIS [None]
